FAERS Safety Report 20465952 (Version 1)
Quarter: 2022Q1

REPORT INFORMATION
  Report Type: Report from Study
  Country: BR (occurrence: BR)
  Receive Date: 20220212
  Receipt Date: 20220212
  Transmission Date: 20220423
  Serious: Yes (Other)
  Sender: FDA-Public Use
  Company Number: BR-NOVARTISPH-NVSC2022BR030088

PATIENT
  Sex: Male

DRUGS (1)
  1. DIOVAN [Suspect]
     Active Substance: VALSARTAN
     Indication: Blood pressure measurement
     Dosage: 160 MG (STARTED APPROXIMATELY 10 YEARS AGO)
     Route: 065

REACTIONS (2)
  - Deafness [Recovering/Resolving]
  - Hypoacusis [Recovering/Resolving]
